FAERS Safety Report 7161322-7 (Version None)
Quarter: 2010Q4

REPORT INFORMATION
  Report Type: 
  Country: None (occurrence: None)
  Receive Date: 20101215
  Receipt Date: 20101203
  Transmission Date: 20110411
  Serious: Yes (Other)
  Sender: FDA-Public Use
  Company Number: FR-JNJFOC-20101202890

PATIENT
  Sex: Male

DRUGS (2)
  1. REMINYL LP [Suspect]
     Indication: DEMENTIA ALZHEIMER'S TYPE
     Route: 048
  2. MEMANTINE HCL [Concomitant]
     Indication: DEMENTIA ALZHEIMER'S TYPE
     Route: 048

REACTIONS (3)
  - INTENTIONAL DRUG MISUSE [None]
  - NO ADVERSE EVENT [None]
  - WRONG TECHNIQUE IN DRUG USAGE PROCESS [None]
